FAERS Safety Report 7093133-5 (Version None)
Quarter: 2010Q4

REPORT INFORMATION
  Report Type: 
  Country: None (occurrence: None)
  Receive Date: 20101110
  Receipt Date: 20090102
  Transmission Date: 20110411
  Serious: No
  Sender: FDA-Public Use
  Company Number: US-KINGPHARMUSA00001-K200900002

PATIENT
  Sex: Male

DRUGS (7)
  1. SEPTRA [Suspect]
     Indication: PROSTATE INFECTION
     Dosage: UNK
     Route: 048
     Dates: start: 20080601
  2. SIMCORA [Suspect]
     Indication: BLOOD CHOLESTEROL INCREASED
     Dosage: 1000/20 MG
     Route: 048
     Dates: start: 20080601, end: 20080601
  3. ALFUZOSIN HYDROCHLORIDE [Concomitant]
     Dosage: UNK
     Route: 048
  4. ALLOPURINOL [Concomitant]
     Indication: GOUT
     Dosage: UNK
     Route: 048
  5. METOPROLOL SUCCINATE [Concomitant]
     Route: 048
  6. FISH OIL [Concomitant]
     Dosage: UNK
     Route: 048
  7. ACETYLSALICYLIC ACID [Concomitant]
     Dosage: 81 MG, QD
     Route: 048

REACTIONS (2)
  - PARAESTHESIA [None]
  - PRURITUS [None]
